FAERS Safety Report 5812697-X (Version None)
Quarter: 2008Q3

REPORT INFORMATION
  Report Type: 
  Country: None (occurrence: None)
  Receive Date: 20080717
  Receipt Date: 20080717
  Transmission Date: 20090109
  Serious: Yes (Death, Hospitalization)
  Sender: FDA-Public Use
  Company Number: None

PATIENT
  Age: 73 Year
  Sex: Female
  Weight: 90.7194 kg

DRUGS (1)
  1. HEPARIN [Suspect]

REACTIONS (13)
  - BLOOD PRESSURE DECREASED [None]
  - CARDIAC FAILURE [None]
  - DRUG HYPERSENSITIVITY [None]
  - DRUG INTERACTION [None]
  - HALLUCINATION [None]
  - HEART RATE INCREASED [None]
  - IMMUNE SYSTEM DISORDER [None]
  - PHARMACEUTICAL PRODUCT COMPLAINT [None]
  - PLATELET COUNT DECREASED [None]
  - PNEUMONIA [None]
  - RESPIRATORY FAILURE [None]
  - UNEVALUABLE EVENT [None]
  - URINARY RETENTION [None]
